FAERS Safety Report 8564882-4 (Version None)
Quarter: 2012Q3

REPORT INFORMATION
  Report Type: 
  Country: None (occurrence: None)
  Receive Date: 20120803
  Receipt Date: 20120724
  Transmission Date: 20120928
  Serious: Yes (Hospitalization)
  Sender: FDA-Public Use
  Company Number: US-BAYER-2012-023913

PATIENT
  Age: 32 Year
  Sex: Female
  Weight: 93 kg

DRUGS (55)
  1. YASMIN [Suspect]
     Indication: MENSTRUAL CYCLE MANAGEMENT
  2. DESOGESTREL AND ETHINYL ESTRADIOL [Concomitant]
     Dosage: UNK
     Dates: start: 20100927, end: 20101117
  3. VIOXX [Concomitant]
  4. BENZAMYCIN [Concomitant]
  5. YAZ [Suspect]
  6. YASMIN [Suspect]
     Indication: PREMENSTRUAL SYNDROME
  7. DROSPIRENONE AND ETHINYL ESTRADIOL [Suspect]
     Indication: PREMENSTRUAL SYNDROME
  8. MUCINEX [Concomitant]
     Route: 048
  9. CLOBETASOL PROPIONATE [Concomitant]
  10. LEXAPRO [Concomitant]
  11. YAZ [Suspect]
     Indication: PREMENSTRUAL SYNDROME
  12. YASMIN [Suspect]
     Indication: ACNE
  13. YASMIN [Suspect]
  14. DROSPIRENONE AND ETHINYL ESTRADIOL [Suspect]
     Indication: CONTRACEPTION
     Dosage: UNK
     Dates: start: 20091001, end: 20100901
  15. DROSPIRENONE AND ETHINYL ESTRADIOL [Suspect]
     Indication: ACNE
  16. LEVAQUIN [Concomitant]
     Indication: PNEUMONIA
     Dosage: 750 MG, QD
     Route: 048
  17. AMPICILLIN [Concomitant]
  18. NAPROXEN [Concomitant]
  19. CYCLOBENZAPRINE [Concomitant]
  20. NSAID'S [Concomitant]
  21. YASMIN [Suspect]
     Indication: CONTRACEPTION
     Dosage: UNK
     Dates: start: 20050301, end: 20080701
  22. FLUCONAZOLE [Concomitant]
  23. CEPHALEXIN [Concomitant]
  24. ALBUTEROL [Concomitant]
  25. HYDROCODONE BITARTRATE [Concomitant]
  26. YAZ [Suspect]
     Indication: MENSTRUAL CYCLE MANAGEMENT
  27. METRONIDAZOLE [Concomitant]
  28. RETIN-A [Concomitant]
  29. GUAIFENESIN PSE [Concomitant]
  30. PENICILLIN [Concomitant]
  31. DROSPIRENONE AND ETHINYL ESTRADIOL [Suspect]
     Indication: MENSTRUAL CYCLE MANAGEMENT
  32. CIPROFLOXACIN [Concomitant]
     Dosage: 750 MG, UNK
     Route: 048
     Dates: start: 20101208
  33. WELLBUTRIN [Concomitant]
  34. DESOXIMETASONE [Concomitant]
  35. CHLORZOXAZONE [Concomitant]
  36. ZITHROMAX [Concomitant]
  37. METROGEL [Concomitant]
  38. DROSPIRENONE AND ETHINYL ESTRADIOL [Suspect]
  39. CIPROFLOXACIN HCL [Concomitant]
     Dosage: UNK
     Dates: start: 20101208
  40. BENZONATATE [Concomitant]
     Dosage: UNK
     Dates: start: 20101208
  41. AZITHROMYCIN [Concomitant]
  42. NABUMETONE [Concomitant]
  43. HUMIBID [Concomitant]
  44. Q-BID [Concomitant]
  45. DIFFERIN [Concomitant]
  46. YAZ [Suspect]
     Indication: CONTRACEPTION
     Dosage: UNK
     Dates: start: 20080701, end: 20091001
  47. YAZ [Suspect]
     Indication: ACNE
  48. TESSALON [Concomitant]
     Indication: COUGH
     Dosage: 200 MG, TID
     Route: 048
     Dates: start: 20101208
  49. NITROFURANTOIN [Concomitant]
  50. ACIDIFIERS [Concomitant]
  51. BENZACLIN [Concomitant]
  52. CIPROFLOXACIN [Concomitant]
  53. TRIAMCINOLONE [Concomitant]
  54. TRETINOIN [Concomitant]
  55. MINOCYCLINE HCL [Concomitant]

REACTIONS (11)
  - GENERAL PHYSICAL HEALTH DETERIORATION [None]
  - INJURY [None]
  - TACHYCARDIA [None]
  - PULMONARY HYPERTENSION [None]
  - PAIN [None]
  - DEEP VEIN THROMBOSIS [None]
  - EMOTIONAL DISTRESS [None]
  - PULMONARY INFARCTION [None]
  - RIGHT VENTRICULAR HYPERTROPHY [None]
  - PULMONARY EMBOLISM [None]
  - ANXIETY [None]
